FAERS Safety Report 15301288 (Version 2)
Quarter: 2018Q3

REPORT INFORMATION
  Report Type: Spontaneous
  Country: US (occurrence: US)
  Receive Date: 20180821
  Receipt Date: 20180828
  Transmission Date: 20181010
  Serious: Yes (Hospitalization)
  Sender: FDA-Public Use
  Company Number: US-FRESENIUS MEDICAL CARE RENAL THERAPIES GROUP-FMC-1808-001504

PATIENT
  Age: 72 Year
  Sex: Female
  Weight: 67.2 kg

DRUGS (14)
  1. AZATHIOPRINE. [Concomitant]
     Active Substance: AZATHIOPRINE
  2. HYDROCORTISONE. [Concomitant]
     Active Substance: HYDROCORTISONE
  3. LEVOTHYROXINE. [Concomitant]
     Active Substance: LEVOTHYROXINE
  4. PREDNISONE. [Concomitant]
     Active Substance: PREDNISONE
  5. ACETAMINOPHEN. [Concomitant]
     Active Substance: ACETAMINOPHEN
  6. DELFLEX [Suspect]
     Active Substance: CALCIUM CHLORIDE\DEXTROSE\MAGNESIUM CHLORIDE\SODIUM CHLORIDE\SODIUM LACTATE
     Indication: END STAGE RENAL DISEASE
     Route: 033
  7. GENTAMICIN. [Concomitant]
     Active Substance: GENTAMICIN
  8. PRAVASTATIN. [Concomitant]
     Active Substance: PRAVASTATIN
  9. LOPERAMIDE [Concomitant]
     Active Substance: LOPERAMIDE
  10. TACROLIMUS. [Concomitant]
     Active Substance: TACROLIMUS
  11. EPOGEN [Concomitant]
     Active Substance: ERYTHROPOIETIN
  12. SERTRALINE [Concomitant]
     Active Substance: SERTRALINE HYDROCHLORIDE
  13. BACTRIM [Concomitant]
     Active Substance: SULFAMETHOXAZOLE\TRIMETHOPRIM
  14. RENVELA [Concomitant]
     Active Substance: SEVELAMER CARBONATE

REACTIONS (3)
  - Sepsis [Recovering/Resolving]
  - Peritonitis [Recovering/Resolving]
  - Device related infection [Recovering/Resolving]

NARRATIVE: CASE EVENT DATE: 20180811
